FAERS Safety Report 8414233-0 (Version None)
Quarter: 2012Q2

REPORT INFORMATION
  Report Type: 
  Country: None (occurrence: None)
  Receive Date: 20120605
  Receipt Date: 20120531
  Transmission Date: 20120825
  Serious: Yes (Other)
  Sender: FDA-Public Use
  Company Number: BR-PFIZER INC-2012131415

PATIENT
  Age: 77 Year
  Sex: Female
  Weight: 72 kg

DRUGS (1)
  1. LIPITOR [Suspect]
     Indication: ARTHRALGIA
     Dosage: 20 MG, 1X/DAY OF CONTINUOUS USE
     Route: 048
     Dates: start: 20050101

REACTIONS (1)
  - DIABETES MELLITUS [None]
